FAERS Safety Report 8732575 (Version 4)
Quarter: 2013Q1

REPORT INFORMATION
  Report Type: Spontaneous
  Country: US (occurrence: US)
  Receive Date: 20120820
  Receipt Date: 20130206
  Transmission Date: 20140127
  Serious: Yes (Death, Hospitalization, Other)
  Sender: FDA-Public Use
  Company Number: US-CELGENEUS-163-21880-12081813

PATIENT
  Age: 64 Year
  Sex: Male
  Weight: 81.74 kg

DRUGS (27)
  1. REVLIMID [Suspect]
     Indication: MYELODYSPLASTIC SYNDROME
     Dosage: 5 MILLIGRAM
     Route: 048
     Dates: start: 20120620, end: 20120731
  2. ALLOPURINOL [Concomitant]
     Indication: RENAL LITHIASIS PROPHYLAXIS
     Dosage: 300 MILLIGRAM
     Route: 048
  3. CALCIUM CITRATE [Concomitant]
     Indication: PRODUCT USED FOR UNKNOWN INDICATION
     Dosage: 1000 MILLIGRAM
     Route: 048
  4. COZAAR [Concomitant]
     Indication: PROTEINURIA
     Dosage: 50 MILLIGRAM
     Route: 048
  5. COZAAR [Concomitant]
     Indication: BLOOD PRESSURE
  6. DEXAMETHASONE [Concomitant]
     Indication: PRODUCT USED FOR UNKNOWN INDICATION
     Dosage: 2 MILLIGRAM
     Route: 048
  7. FOLIC ACID [Concomitant]
     Indication: PRODUCT USED FOR UNKNOWN INDICATION
     Dosage: 1 MILLIGRAM
     Route: 048
  8. LASIX [Concomitant]
     Indication: PRODUCT USED FOR UNKNOWN INDICATION
     Dosage: 20 MILLIGRAM
     Route: 048
  9. MVI [Concomitant]
     Indication: PRODUCT USED FOR UNKNOWN INDICATION
     Route: 048
  10. OMEGA-3 [Concomitant]
     Indication: PRODUCT USED FOR UNKNOWN INDICATION
     Dosage: 2000 MILLIGRAM
     Route: 048
  11. PYRIDOXINE HCL [Concomitant]
     Indication: PRODUCT USED FOR UNKNOWN INDICATION
     Dosage: 100 MILLIGRAM
     Route: 048
  12. VITAMIN B12 [Concomitant]
     Indication: VITAMIN B12 DEFICIENCY
     Dosage: 1,000 MCG/ML
     Route: 030
  13. VITAMIN D3 [Concomitant]
     Indication: PRODUCT USED FOR UNKNOWN INDICATION
     Dosage: 2000 IU (INTERNATIONAL UNIT)
     Route: 048
  14. VITAMIN K [Concomitant]
     Indication: PRODUCT USED FOR UNKNOWN INDICATION
     Dosage: 5 MILLIGRAM
     Route: 048
  15. ZOCOR [Concomitant]
     Indication: BLOOD CHOLESTEROL
     Dosage: 20 MILLIGRAM
     Route: 048
  16. FLUTICASONE [Concomitant]
     Indication: PRODUCT USED FOR UNKNOWN INDICATION
     Dosage: 50 MICROGRAM
     Route: 045
  17. OXYCODONE [Concomitant]
     Indication: PAIN
     Dosage: 5 MILLIGRAM
     Route: 048
  18. SODIUM CHLORIDE [Concomitant]
     Indication: PRODUCT USED FOR UNKNOWN INDICATION
     Dosage: 50 MICROGRAM
     Route: 045
  19. DARBEPOIETIN [Concomitant]
     Indication: ANAEMIA
     Route: 065
  20. DARBEPOIETIN [Concomitant]
     Indication: THROMBOCYTOPENIA
  21. VENOFER [Concomitant]
     Indication: ANAEMIA
     Route: 065
     Dates: end: 20120412
  22. VENOFER [Concomitant]
     Indication: THROMBOCYTOPENIA
  23. PACKED RED BLOOD CELLS [Concomitant]
     Indication: ANAEMIA
     Dosage: 2 IU (INTERNATIONAL UNIT)
     Route: 065
     Dates: start: 20120627
  24. PACKED RED BLOOD CELLS [Concomitant]
     Indication: THROMBOCYTOPENIA
  25. ERYTHROPOIETIN [Concomitant]
     Indication: ANAEMIA
     Route: 065
  26. HEPARIN [Concomitant]
     Indication: PULMONARY EMBOLISM
     Route: 041
  27. PHENYTOIN [Concomitant]
     Indication: PRODUCT USED FOR UNKNOWN INDICATION
     Route: 065

REACTIONS (3)
  - Sepsis [Fatal]
  - Acute leukaemia [Fatal]
  - Renal failure acute [Recovered/Resolved with Sequelae]
